FAERS Safety Report 22230762 (Version 1)
Quarter: 2023Q2

REPORT INFORMATION
  Report Type: Spontaneous
  Country: GB (occurrence: None)
  Receive Date: 20230420
  Receipt Date: 20230420
  Transmission Date: 20230722
  Serious: Yes (Life-Threatening)
  Sender: FDA-Public Use
  Company Number: GB-MHRA-MED-202304131206289450-JQCKH

PATIENT
  Age: 80 Year

DRUGS (4)
  1. METHOTREXATE [Suspect]
     Active Substance: METHOTREXATE
     Indication: Colitis ulcerative
     Dates: start: 20220719, end: 20221201
  2. ADALIMUMAB [Suspect]
     Active Substance: ADALIMUMAB
     Indication: Colitis ulcerative
     Dosage: 160 MG SUBCUTANEOUS WEEK 0, 80MG SUBCUTANEOUS WEEK 2 THEN STOPPED
     Dates: start: 20220105, end: 20220119
  3. USTEKINUMAB [Suspect]
     Active Substance: USTEKINUMAB
     Indication: Colitis ulcerative
     Dosage: 12 WEEKLY
     Dates: start: 20220902, end: 20230404
  4. VEDOLIZUMAB [Suspect]
     Active Substance: VEDOLIZUMAB
     Indication: Colitis ulcerative
     Dosage: 8 WEEKLY
     Dates: start: 20210201, end: 20211101

REACTIONS (2)
  - Glioblastoma [Not Recovered/Not Resolved]
  - Product use in unapproved indication [Unknown]

NARRATIVE: CASE EVENT DATE: 20230306
